FAERS Safety Report 10286315 (Version 1)
Quarter: 2014Q3

REPORT INFORMATION
  Report Type: Spontaneous
  Country: US (occurrence: US)
  Receive Date: 20140709
  Receipt Date: 20140709
  Transmission Date: 20150326
  Serious: Yes (Death)
  Sender: FDA-Public Use
  Company Number: US-CELGENEUS-163-21660-14070728

PATIENT
  Age: 56 Year
  Sex: Male

DRUGS (3)
  1. ABRAXANE [Suspect]
     Active Substance: PACLITAXEL
     Indication: PRODUCT USED FOR UNKNOWN INDICATION
     Route: 050
     Dates: start: 20140305, end: 20140305
  2. ABRAXANE [Suspect]
     Active Substance: PACLITAXEL
     Route: 050
     Dates: start: 20140312, end: 20140312
  3. ABRAXANE [Suspect]
     Active Substance: PACLITAXEL
     Route: 050
     Dates: start: 20140309, end: 20140309

REACTIONS (1)
  - Neoplasm progression [Fatal]

NARRATIVE: CASE EVENT DATE: 20140506
